FAERS Safety Report 6548767-0 (Version None)
Quarter: 2010Q1

REPORT INFORMATION
  Report Type: 
  Country: None (occurrence: None)
  Receive Date: 20100124
  Receipt Date: 20091110
  Transmission Date: 20100710
  Serious: No
  Sender: FDA-Public Use
  Company Number: US-ALLERGAN-0915551US

PATIENT
  Sex: Female

DRUGS (1)
  1. RESTASIS [Suspect]
     Indication: DRY EYE

REACTIONS (9)
  - BACK PAIN [None]
  - DIZZINESS [None]
  - EYE PAIN [None]
  - HEADACHE [None]
  - JOINT CREPITATION [None]
  - NAUSEA [None]
  - TINNITUS [None]
  - VISION BLURRED [None]
  - VOMITING [None]
